FAERS Safety Report 4382613-9 (Version None)
Quarter: 2004Q2

REPORT INFORMATION
  Report Type: 
  Country: None (occurrence: None)
  Receive Date: 20040616
  Receipt Date: 20040603
  Transmission Date: 20050107
  Serious: Yes (Hospitalization)
  Sender: FDA-Public Use
  Company Number: 230107M04USA

PATIENT
  Age: 59 Year
  Sex: Female

DRUGS (12)
  1. REBIF [Suspect]
     Indication: MULTIPLE SCLEROSIS
     Dosage: 8.8 MCG, 3 IN 1 WEEKS, SUBCUTANEOUS
     Route: 058
     Dates: start: 20040525
  2. LEVOTHYROXINE SODIUM [Concomitant]
  3. RISEDRONATE SODIUM [Concomitant]
  4. ZOLMITRIPTAN [Concomitant]
  5. TRIAMCINOLONE [Concomitant]
  6. IBUPROFEN [Concomitant]
  7. IRON [Concomitant]
  8. CALCIUM [Concomitant]
  9. ASPIRIN [Concomitant]
  10. PROVELLA-14 [Concomitant]
  11. ACETAMINOPHEN [Concomitant]
  12. TOLTERODINE TARTRATE [Concomitant]

REACTIONS (2)
  - HEART RATE INCREASED [None]
  - MICTURITION URGENCY [None]
